FAERS Safety Report 20589936 (Version 4)
Quarter: 2022Q3

REPORT INFORMATION
  Report Type: Spontaneous
  Country: JP (occurrence: JP)
  Receive Date: 20220314
  Receipt Date: 20220715
  Transmission Date: 20221026
  Serious: No
  Sender: FDA-Public Use
  Company Number: JP-GLAXOSMITHKLINE-JP2022JPN043735

PATIENT

DRUGS (6)
  1. SOTROVIMAB [Suspect]
     Active Substance: SOTROVIMAB
     Indication: COVID-19
     Dosage: 8 ML
     Route: 042
     Dates: start: 20220306, end: 20220306
  2. CORTRIL [Suspect]
     Active Substance: HYDROCORTISONE
     Indication: Cushing^s syndrome
     Dosage: 10 MG/DAY
     Route: 048
     Dates: start: 202004
  3. ESTRADIOL [Suspect]
     Active Substance: ESTRADIOL
     Indication: Cushing^s syndrome
     Dosage: 0.72 MG/DAY
     Dates: start: 20220210
  4. PROGESTERONE [Suspect]
     Active Substance: PROGESTERONE
     Indication: Cushing^s syndrome
     Dosage: 100 MG/DAY
     Route: 048
     Dates: start: 20220210
  5. CEFACLOR [Suspect]
     Active Substance: CEFACLOR
     Indication: Cushing^s syndrome
     Dosage: 250 MG/DAY
     Route: 048
     Dates: start: 20220210
  6. CALONAL [Suspect]
     Active Substance: ACETAMINOPHEN
     Indication: Antipyresis
     Dosage: 400 MG/DAY
     Route: 048
     Dates: start: 20220306, end: 20220308

REACTIONS (1)
  - Exposure during pregnancy [Unknown]
